APPROVED DRUG PRODUCT: DILOR-400
Active Ingredient: DYPHYLLINE
Strength: 400MG
Dosage Form/Route: TABLET;ORAL
Application: A084751 | Product #001
Applicant: SAVAGE LABORATORIES INC DIV ALTANA INC
Approved: Approved Prior to Jan 1, 1982 | RLD: No | RS: No | Type: DISCN